FAERS Safety Report 21038768 (Version 2)
Quarter: 2022Q3

REPORT INFORMATION
  Report Type: Spontaneous
  Country: US (occurrence: US)
  Receive Date: 20220704
  Receipt Date: 20220921
  Transmission Date: 20221026
  Serious: No
  Sender: FDA-Public Use
  Company Number: US-ARDELYX-2022ARDX000068

PATIENT

DRUGS (1)
  1. IBSRELA [Suspect]
     Active Substance: TENAPANOR HYDROCHLORIDE
     Indication: Irritable bowel syndrome
     Dosage: 50 MILLIGRAM
     Route: 048
     Dates: start: 2022, end: 2022

REACTIONS (1)
  - Nausea [Recovered/Resolved]

NARRATIVE: CASE EVENT DATE: 20220101
